FAERS Safety Report 10418857 (Version 1)
Quarter: 2014Q3

REPORT INFORMATION
  Report Type: Spontaneous
  Country: DE (occurrence: None)
  Receive Date: 20140827
  Receipt Date: 20140827
  Transmission Date: 20150326
  Serious: Yes (Congenital Anomaly, Other)
  Sender: FDA-Public Use
  Company Number: AUR-APL-2014-08906

PATIENT
  Sex: Male
  Weight: 3.9 kg

DRUGS (4)
  1. DOXYCYCLINE. [Concomitant]
     Active Substance: DOXYCYCLINE
  2. METFORMIN [Suspect]
     Active Substance: METFORMIN HYDROCHLORIDE
     Indication: DIABETES MELLITUS
     Dosage: 1-0-1
     Route: 064
     Dates: start: 20130106, end: 20130226
  3. L-THYROXIN (LEVOTHYROXINE SODIUM) [Concomitant]
  4. PROTAPHANE (INSULIN HUMAN INJECTION, ISOPHANE) [Concomitant]

REACTIONS (3)
  - Renal hypertrophy [None]
  - Renal aplasia [None]
  - Foetal exposure during pregnancy [None]
